FAERS Safety Report 25780808 (Version 2)
Quarter: 2025Q3

REPORT INFORMATION
  Report Type: Spontaneous
  Country: IN (occurrence: IN)
  Receive Date: 20250909
  Receipt Date: 20250910
  Transmission Date: 20251020
  Serious: Yes (Hospitalization, Other)
  Sender: BAUSCH AND LOMB
  Company Number: IN-MLMSERVICE-20250903-PI631187-00117-1

PATIENT
  Age: 23 Year
  Sex: Male

DRUGS (1)
  1. DEXAMETHASONE [Suspect]
     Active Substance: DEXAMETHASONE
     Indication: Dermatitis allergic
     Route: 030

REACTIONS (4)
  - Hypothalamic pituitary adrenal axis suppression [Unknown]
  - Cushing^s syndrome [Unknown]
  - Body tinea [Unknown]
  - Intentional product misuse [Unknown]
